FAERS Safety Report 18925080 (Version 1)
Quarter: 2021Q1

REPORT INFORMATION
  Report Type: Spontaneous
  Country: IT (occurrence: IT)
  Receive Date: 20210222
  Receipt Date: 20210222
  Transmission Date: 20210420
  Serious: Yes (Hospitalization)
  Sender: FDA-Public Use
  Company Number: IT-PFIZER INC-2021152142

PATIENT
  Age: 20 Year
  Sex: Male

DRUGS (3)
  1. TAVOR (LORAZEPAM) [Suspect]
     Active Substance: LORAZEPAM
     Indication: DEPRESSION
     Dosage: 50 MG TOTAL
     Route: 048
     Dates: start: 20200813, end: 20200813
  2. XANAX [Suspect]
     Active Substance: ALPRAZOLAM
     Indication: DEPRESSION
     Dosage: 20 ML TOTAL
     Route: 048
     Dates: start: 20200813, end: 20200813
  3. RIVOTRIL [Concomitant]
     Active Substance: CLONAZEPAM
     Indication: DEPRESSION
     Dosage: 1 DF, 1X/DAY
     Route: 048

REACTIONS (9)
  - Sopor [Recovering/Resolving]
  - Off label use [Unknown]
  - Intentional self-injury [Recovering/Resolving]
  - Somnolence [Recovering/Resolving]
  - Drug abuse [Recovering/Resolving]
  - Road traffic accident [Recovering/Resolving]
  - Hypokinesia [Recovering/Resolving]
  - Dysarthria [Recovering/Resolving]
  - Bradyphrenia [Recovering/Resolving]

NARRATIVE: CASE EVENT DATE: 20200813
